FAERS Safety Report 10197947 (Version 1)
Quarter: 2014Q2

REPORT INFORMATION
  Report Type: Spontaneous
  Country: US (occurrence: None)
  Receive Date: 20140523
  Receipt Date: 20140523
  Transmission Date: 20141212
  Serious: No
  Sender: FDA-Public Use
  Company Number: None

PATIENT
  Age: 73 Year
  Sex: Female
  Weight: 56.7 kg

DRUGS (15)
  1. LEVOFLOXACIN [Suspect]
     Indication: RESPIRATORY TRACT INFECTION
     Route: 048
     Dates: start: 20140423, end: 20140428
  2. LEVOTHYROXINE [Concomitant]
  3. BABY ASPIRIN [Concomitant]
  4. VITAMIN E [Concomitant]
  5. VITAMIN C [Concomitant]
  6. VITAMIN D [Concomitant]
  7. B 12 [Concomitant]
  8. FISH OIL [Concomitant]
  9. LUTEIN [Concomitant]
  10. CALCIUM [Concomitant]
  11. CO Q-10 [Concomitant]
  12. GLUCOSAMINE [Concomitant]
  13. B COMPLEX +B12 [Concomitant]
  14. ALOE VERA [Concomitant]
  15. PROTEIN SHAKE [Concomitant]

REACTIONS (6)
  - Tendonitis [None]
  - Neuropathy peripheral [None]
  - Pain in extremity [None]
  - Pain in extremity [None]
  - Pain in extremity [None]
  - Musculoskeletal pain [None]
